FAERS Safety Report 23772616 (Version 1)
Quarter: 2024Q2

REPORT INFORMATION
  Report Type: Spontaneous
  Country: CH (occurrence: None)
  Receive Date: 20240422
  Receipt Date: 20240422
  Transmission Date: 20240716
  Serious: Yes (Disabling)
  Sender: FDA-Public Use
  Company Number: None

PATIENT
  Age: 68 Year
  Sex: Female
  Weight: 74 kg

DRUGS (6)
  1. LEQVIO [Suspect]
     Active Substance: INCLISIRAN SODIUM
     Indication: Low density lipoprotein increased
     Dosage: OTHER QUANTITY : 1 INJECTION(S);?OTHER FREQUENCY : 2 PER YEAR;?
     Route: 058
     Dates: start: 20231121
  2. ELIQUIS [Concomitant]
     Active Substance: APIXABAN
  3. CANDESARTAN [Concomitant]
     Active Substance: CANDESARTAN
  4. METOPROLOL [Concomitant]
     Active Substance: METOPROLOL
  5. tyrosint [Concomitant]
  6. EZETIMIBE [Concomitant]
     Active Substance: EZETIMIBE

REACTIONS (3)
  - Arthralgia [None]
  - Small fibre neuropathy [None]
  - Injection site reaction [None]

NARRATIVE: CASE EVENT DATE: 20240104
